FAERS Safety Report 8807556 (Version 1)
Quarter: 2012Q4

REPORT INFORMATION
  Report Type: 
  Country: US (occurrence: US)
  Receive Date: 20120925
  Receipt Date: 20120925
  Transmission Date: 20130627
  Serious: No
  Sender: FDA-Public Use
  Company Number: US-FOUGERA-2012FO000164

PATIENT
  Age: 64 None
  Sex: Female

DRUGS (1)
  1. LIDOCAINE + PRILOCAINE [Suspect]
     Indication: ANALGESIC THERAPY
     Dates: start: 20110801, end: 20110826

REACTIONS (1)
  - Drug ineffective [Recovered/Resolved]
